FAERS Safety Report 8274496-1 (Version None)
Quarter: 2012Q2

REPORT INFORMATION
  Report Type: 
  Country: None (occurrence: None)
  Receive Date: 20120411
  Receipt Date: 20120402
  Transmission Date: 20120825
  Serious: Yes (Hospitalization)
  Sender: FDA-Public Use
  Company Number: FR-ASTRAZENECA-2011SE77372

PATIENT
  Age: 66 Year
  Sex: Female

DRUGS (8)
  1. NEORAL [Interacting]
     Indication: RENAL TRANSPLANT
     Route: 065
     Dates: start: 20050601, end: 20050101
  2. NEORAL [Interacting]
     Route: 065
     Dates: start: 20111101, end: 20111129
  3. SOTALOL HCL [Concomitant]
  4. COLCHICINE [Interacting]
     Indication: FAMILIAL MEDITERRANEAN FEVER
     Route: 048
     Dates: end: 20111120
  5. VALSARTAN [Concomitant]
  6. MYCOPHENOLATE MOFETIL (CELLCEPT) [Concomitant]
     Dates: start: 20050101
  7. LASIX [Concomitant]
  8. CRESTOR [Suspect]
     Indication: DYSLIPIDAEMIA
     Route: 048
     Dates: start: 20110601, end: 20111117

REACTIONS (4)
  - DYSARTHRIA [None]
  - TACHYPNOEA [None]
  - DRUG INTERACTION [None]
  - RHABDOMYOLYSIS [None]
